FAERS Safety Report 8608808-3 (Version None)
Quarter: 2012Q3

REPORT INFORMATION
  Report Type: 
  Country: None (occurrence: None)
  Receive Date: 20120821
  Receipt Date: 20120809
  Transmission Date: 20120928
  Serious: Yes (Hospitalization)
  Sender: FDA-Public Use
  Company Number: US-BAYER-2012-058303

PATIENT
  Age: 24 Year
  Sex: Female
  Weight: 57.143 kg

DRUGS (6)
  1. YASMIN [Suspect]
     Indication: ACNE
  2. NEXIUM [Concomitant]
     Dosage: 40 MG, QD
  3. YASMIN [Suspect]
     Indication: CONTRACEPTION
     Dosage: UNK
     Dates: start: 20080701, end: 20110101
  4. YASMIN [Suspect]
     Indication: DYSMENORRHOEA
  5. FERROUS SULFATE TAB [Concomitant]
     Dosage: 325 MG, UNK
  6. DROSPIRENONE AND ETHINYL ESTRADIOL [Suspect]
     Dosage: UNK
     Dates: start: 20080901

REACTIONS (6)
  - THROMBOSIS [None]
  - PAIN [None]
  - INJURY [None]
  - EMOTIONAL DISTRESS [None]
  - COLITIS ISCHAEMIC [None]
  - HAEMORRHAGE [None]
